FAERS Safety Report 8521530 (Version 2)
Quarter: 2013Q2

REPORT INFORMATION
  Report Type: Spontaneous
  Country: BR (occurrence: BR)
  Receive Date: 20120419
  Receipt Date: 20130627
  Transmission Date: 20140414
  Serious: Yes (Other)
  Sender: FDA-Public Use
  Company Number: BR-US-EMD SERONO, INC.-7125765

PATIENT
  Sex: Female

DRUGS (7)
  1. REBIF [Suspect]
     Indication: RELAPSING-REMITTING MULTIPLE SCLEROSIS
     Dates: start: 20080818
  2. PARACETAMOL [Concomitant]
     Indication: PRODUCT USED FOR UNKNOWN INDICATION
  3. GLIFAGE XR [Concomitant]
     Indication: PRODUCT USED FOR UNKNOWN INDICATION
  4. GLIFAGE XR [Concomitant]
  5. ARADOIS [Concomitant]
     Indication: PRODUCT USED FOR UNKNOWN INDICATION
  6. HYDROCHLOROTHIAZIDE [Concomitant]
     Indication: PRODUCT USED FOR UNKNOWN INDICATION
  7. IBUPROFEN [Concomitant]
     Indication: PAIN

REACTIONS (5)
  - Diabetes mellitus [Unknown]
  - Mood altered [Unknown]
  - Anxiety [Unknown]
  - Impatience [Unknown]
  - Injection site erythema [Not Recovered/Not Resolved]
